FAERS Safety Report 5998684-X (Version None)
Quarter: 2008Q4

REPORT INFORMATION
  Report Type: 
  Country: None (occurrence: None)
  Receive Date: 20081213
  Receipt Date: 20080715
  Transmission Date: 20090506
  Serious: No
  Sender: FDA-Public Use
  Company Number: US-AMGEN-KDL295042

PATIENT
  Sex: Female

DRUGS (2)
  1. ENBREL [Suspect]
     Indication: ANKYLOSING SPONDYLITIS
     Route: 058
     Dates: start: 20080301
  2. SULFASALAZINE [Concomitant]
     Route: 048
     Dates: start: 20070921

REACTIONS (3)
  - DRUG INEFFECTIVE [None]
  - FATIGUE [None]
  - SINUSITIS [None]
